FAERS Safety Report 4492842-1 (Version None)
Quarter: 2004Q4

REPORT INFORMATION
  Report Type: 
  Country: None (occurrence: None)
  Receive Date: 20041104
  Receipt Date: 20040827
  Transmission Date: 20050328
  Serious: Yes (Hospitalization)
  Sender: FDA-Public Use
  Company Number: DE-AMGEN-UK089040

PATIENT
  Sex: Female
  Weight: 57 kg

DRUGS (7)
  1. ARANESP [Suspect]
     Indication: RENAL TRANSPLANT
     Route: 058
     Dates: start: 20020701
  2. CELLCEPT [Suspect]
  3. PROGRAF [Concomitant]
     Route: 048
  4. PREDNISOLONE [Concomitant]
     Route: 048
  5. ZYLORIC [Concomitant]
     Route: 048
  6. ROCALTROL [Concomitant]
     Route: 048
  7. PANTOZOL [Concomitant]
     Route: 048

REACTIONS (6)
  - ANAEMIA [None]
  - APLASIA PURE RED CELL [None]
  - DISEASE PROGRESSION [None]
  - DRUG TOXICITY [None]
  - MYELODYSPLASTIC SYNDROME [None]
  - THERAPEUTIC RESPONSE DECREASED [None]
